FAERS Safety Report 20884416 (Version 4)
Quarter: 2022Q2

REPORT INFORMATION
  Report Type: Spontaneous
  Country: US (occurrence: US)
  Receive Date: 20220527
  Receipt Date: 20220610
  Transmission Date: 20220721
  Serious: Yes (Hospitalization, Other)
  Sender: FDA-Public Use
  Company Number: US-PFIZER INC-202200755406

PATIENT
  Age: 88 Year
  Sex: Female

DRUGS (1)
  1. ATROPINE SULFATE [Suspect]
     Active Substance: ATROPINE SULFATE
     Dosage: UNK

REACTIONS (4)
  - Procedural nausea [Unknown]
  - Procedural vomiting [Unknown]
  - Electrolyte imbalance [Unknown]
  - Drug hypersensitivity [Unknown]
